FAERS Safety Report 9434758 (Version 2)
Quarter: 2014Q1

REPORT INFORMATION
  Report Type: Spontaneous
  Country: US (occurrence: US)
  Receive Date: 20130801
  Receipt Date: 20140217
  Transmission Date: 20141002
  Serious: Yes (Hospitalization, Other)
  Sender: FDA-Public Use
  Company Number: US-009507513-1307USA017059

PATIENT
  Sex: Female
  Weight: 72.56 kg

DRUGS (1)
  1. NUVARING [Suspect]
     Indication: CONTRACEPTION
     Dosage: RING IN 3 WEEKS, OUT 1 WEEK
     Route: 067
     Dates: start: 201208, end: 20121207

REACTIONS (10)
  - Acute respiratory failure [Recovered/Resolved]
  - Pulmonary embolism [Unknown]
  - Leukocytosis [Recovered/Resolved]
  - Pleurisy [Recovered/Resolved]
  - Coagulopathy [Unknown]
  - Nausea [Unknown]
  - Adverse drug reaction [Unknown]
  - Thirst [Unknown]
  - Headache [Unknown]
  - Tremor [Unknown]
